FAERS Safety Report 4390321-3 (Version None)
Quarter: 2004Q2

REPORT INFORMATION
  Report Type: 
  Country: None (occurrence: None)
  Receive Date: 20040628
  Receipt Date: 20040614
  Transmission Date: 20050107
  Serious: Yes (Other)
  Sender: FDA-Public Use
  Company Number: 2004039627

PATIENT
  Age: 51 Year
  Sex: Female
  Weight: 71 kg

DRUGS (1)
  1. GABAPENTIN [Suspect]
     Indication: MIGRAINE
     Dosage: 700 MG (700 MG , 1 IN 1 D), ORAL
     Route: 048
     Dates: start: 20030808

REACTIONS (4)
  - FACIAL SPASM [None]
  - PHARMACEUTICAL PRODUCT COMPLAINT [None]
  - TIC [None]
  - VITREOUS FLOATERS [None]
